FAERS Safety Report 6181565-9 (Version None)
Quarter: 2009Q2

REPORT INFORMATION
  Report Type: 
  Country: None (occurrence: None)
  Receive Date: 20090506
  Receipt Date: 20090501
  Transmission Date: 20091009
  Serious: No
  Sender: FDA-Public Use
  Company Number: US-JNJFOC-20090500881

PATIENT
  Sex: Female
  Weight: 65.77 kg

DRUGS (6)
  1. DURAGESIC-100 [Suspect]
     Indication: NECK PAIN
     Route: 062
  2. NEURONTIN [Concomitant]
     Indication: NEURALGIA
     Route: 048
  3. ZANTAC [Concomitant]
     Indication: GASTRIC DISORDER
     Route: 048
  4. HYDROCHLOROTHIAZIDE [Concomitant]
     Indication: DIURETIC THERAPY
     Route: 048
  5. METHADONE [Concomitant]
     Indication: PAIN
     Route: 048
  6. PERCOCET [Concomitant]
     Indication: PAIN
     Route: 048

REACTIONS (7)
  - DRUG ADMINISTRATION ERROR [None]
  - DRUG EFFECT DECREASED [None]
  - NAUSEA [None]
  - PRODUCT QUALITY ISSUE [None]
  - RESTLESS LEGS SYNDROME [None]
  - THERAPY CESSATION [None]
  - WITHDRAWAL SYNDROME [None]
